FAERS Safety Report 15712223 (Version 1)
Quarter: 2018Q4

REPORT INFORMATION
  Report Type: Spontaneous
  Country: US (occurrence: US)
  Receive Date: 20181212
  Receipt Date: 20181212
  Transmission Date: 20190205
  Serious: No
  Sender: FDA-Public Use
  Company Number: US-PFIZER INC-2018510602

PATIENT
  Age: 50 Year
  Sex: Female

DRUGS (1)
  1. GENOTROPIN MQ [Suspect]
     Active Substance: SOMATROPIN
     Dosage: 0.4 MG, DAILY

REACTIONS (5)
  - Globulins decreased [Unknown]
  - Blood glucose increased [Unknown]
  - Albumin globulin ratio increased [Unknown]
  - Cortisol increased [Unknown]
  - Blood corticotrophin increased [Unknown]
